FAERS Safety Report 24793637 (Version 1)
Quarter: 2024Q4

REPORT INFORMATION
  Report Type: Spontaneous
  Country: TH (occurrence: TH)
  Receive Date: 20241231
  Receipt Date: 20241231
  Transmission Date: 20250115
  Serious: Yes (Death)
  Sender: PFIZER
  Company Number: TH-PFIZER INC-PV202400169194

PATIENT
  Age: 96 Year
  Sex: Male

DRUGS (1)
  1. XALKORI [Suspect]
     Active Substance: CRIZOTINIB
     Indication: Non-small cell lung cancer
     Dosage: 250 MG, 1X/DAY
     Route: 048
     Dates: start: 20240717

REACTIONS (1)
  - Death [Fatal]

NARRATIVE: CASE EVENT DATE: 20240930
